FAERS Safety Report 23263161 (Version 2)
Quarter: 2023Q4

REPORT INFORMATION
  Report Type: Spontaneous
  Country: BR (occurrence: BR)
  Receive Date: 20231205
  Receipt Date: 20231218
  Transmission Date: 20240110
  Serious: Yes (Other)
  Sender: FDA-Public Use
  Company Number: BR-Accord-392798

PATIENT
  Age: 44 Year
  Sex: Female

DRUGS (3)
  1. CLOZAPINE [Suspect]
     Active Substance: CLOZAPINE
     Indication: Schizophrenia
     Dosage: TITRATED UP TO 600 MG DAILY WITHIN THE FIRST YEAR OF ADMINISTRATION
     Dates: start: 2009
  2. SERTRALINE [Concomitant]
     Active Substance: SERTRALINE HYDROCHLORIDE
     Indication: Schizophrenia
  3. VALPROIC ACID [Concomitant]
     Active Substance: VALPROIC ACID
     Indication: Schizophrenia

REACTIONS (3)
  - Diffuse large B-cell lymphoma stage IV [Recovering/Resolving]
  - Skin mass [Unknown]
  - Anaemia [Recovering/Resolving]
